FAERS Safety Report 10068543 (Version 3)
Quarter: 2014Q2

REPORT INFORMATION
  Report Type: Spontaneous
  Country: IT (occurrence: IT)
  Receive Date: 20140409
  Receipt Date: 20140604
  Transmission Date: 20141212
  Serious: Yes (Hospitalization)
  Sender: FDA-Public Use
  Company Number: IT-TEVA-473567ISR

PATIENT
  Age: 80 Year
  Sex: Female

DRUGS (5)
  1. LEVOFLOXACIN [Suspect]
     Indication: BRONCHITIS
     Dosage: 500 MILLIGRAM DAILY;
     Route: 048
     Dates: start: 20140319, end: 20140325
  2. COUMADIN - 5 MG COMPRESSE - BRISTOL MYERS SQUIBB S.R.L. [Interacting]
     Indication: DEEP VEIN THROMBOSIS
     Route: 048
     Dates: start: 20140314, end: 20140318
  3. COUMADIN - 5 MG COMPRESSE - BRISTOL MYERS SQUIBB S.R.L. [Interacting]
     Indication: DEEP VEIN THROMBOSIS
     Route: 048
     Dates: start: 20140319, end: 20140325
  4. CLEXANE T - 8000 U.I. AXA/0,8 ML SOLUZIONE INIETTABILE [Interacting]
     Indication: DEEP VEIN THROMBOSIS
     Route: 058
     Dates: start: 20140319, end: 20140325
  5. ENALAPRIL MALEATE [Concomitant]
     Indication: HYPERTENSION
     Route: 048
     Dates: end: 20140325

REACTIONS (2)
  - Haematuria [Recovered/Resolved]
  - Drug interaction [Recovered/Resolved]
